FAERS Safety Report 10136505 (Version 1)
Quarter: 2014Q2

REPORT INFORMATION
  Report Type: Spontaneous
  Country: US (occurrence: None)
  Receive Date: 20140425
  Receipt Date: 20140425
  Transmission Date: 20141212
  Serious: No
  Sender: FDA-Public Use
  Company Number: None

PATIENT
  Age: 63 Year
  Sex: Male
  Weight: 106.6 kg

DRUGS (3)
  1. TESTOSTERONE CYPIONATE [Suspect]
     Indication: BLOOD TESTOSTERONE DECREASED
     Dosage: 1, 2X MONTH, INTO THE MUSCLE
     Dates: start: 20140405
  2. TESTOSTERONE CYPIONATE [Suspect]
     Indication: FATIGUE
     Dosage: 1, 2X MONTH, INTO THE MUSCLE
     Dates: start: 20140405
  3. TESTOSTERONE CYPIONATE [Suspect]
     Indication: ASTHENIA
     Dosage: 1, 2X MONTH, INTO THE MUSCLE
     Dates: start: 20140405

REACTIONS (3)
  - Hypersensitivity [None]
  - Injection site swelling [None]
  - Product substitution issue [None]
